FAERS Safety Report 14658226 (Version 2)
Quarter: 2018Q2

REPORT INFORMATION
  Report Type: Report from Study
  Country: US (occurrence: US)
  Receive Date: 20180320
  Receipt Date: 20180418
  Transmission Date: 20180711
  Serious: No
  Sender: FDA-Public Use
  Company Number: US-ALK-ABELLO A/S-2018AA000595

PATIENT

DRUGS (1)
  1. GRAZAX [Suspect]
     Active Substance: PHLEUM PRATENSE POLLEN
     Indication: PRODUCT USED FOR UNKNOWN INDICATION
     Dosage: 2800 BIOEQUIVALENT ALLERGY UNITS

REACTIONS (2)
  - Off label use [Unknown]
  - Drug administered to patient of inappropriate age [Unknown]
